FAERS Safety Report 11152414 (Version 1)
Quarter: 2015Q2

REPORT INFORMATION
  Report Type: Spontaneous
  Country: NL (occurrence: NL)
  Receive Date: 20150601
  Receipt Date: 20150601
  Transmission Date: 20150821
  Serious: Yes (Other)
  Sender: FDA-Public Use
  Company Number: NL-BAYER-2015-259512

PATIENT
  Age: 34 Year
  Sex: Female

DRUGS (1)
  1. NIFEDIPINE. [Suspect]
     Active Substance: NIFEDIPINE
     Dosage: UNK

REACTIONS (5)
  - Umbilical cord haemorrhage [None]
  - Exposure during pregnancy [None]
  - Premature labour [None]
  - Vascular rupture [None]
  - Premature rupture of membranes [None]
